FAERS Safety Report 8483878-4 (Version None)
Quarter: 2012Q2

REPORT INFORMATION
  Report Type: 
  Country: None (occurrence: None)
  Receive Date: 20120627
  Receipt Date: 20120627
  Transmission Date: 20120825
  Serious: Yes (Hospitalization)
  Sender: FDA-Public Use
  Company Number: None

PATIENT
  Age: 60 Year
  Sex: Female
  Weight: 64.7 kg

DRUGS (2)
  1. CAPECITABINE [Suspect]
     Indication: PANCREATIC CARCINOMA
     Dosage: 1000 MG ONCE DAILY M-F
     Dates: start: 20120523, end: 20120607
  2. VORINOSTAT [Suspect]
     Indication: PANCREATIC CARCINOMA
     Dosage: 400 MG ONCE DAILY M-F
     Dates: start: 20120523, end: 20120613

REACTIONS (7)
  - WEIGHT DECREASED [None]
  - THROMBOCYTOPENIA [None]
  - ABDOMINAL PAIN [None]
  - DECREASED APPETITE [None]
  - CONSTIPATION [None]
  - ABDOMINAL DISTENSION [None]
  - NAUSEA [None]
